FAERS Safety Report 12859783 (Version 14)
Quarter: 2019Q3

REPORT INFORMATION
  Report Type: Report from Study
  Country: JP (occurrence: JP)
  Receive Date: 20161018
  Receipt Date: 20190711
  Transmission Date: 20191004
  Serious: Yes (Life-Threatening, Other)
  Sender: FDA-Public Use
  Company Number: JP-AMGEN-JPNCT2016041551

PATIENT
  Age: 67 Year
  Sex: Female
  Weight: 60 kg

DRUGS (27)
  1. OXALIPLATIN. [Suspect]
     Active Substance: OXALIPLATIN
     Dosage: 135 MILLIGRAM, Q2WEEKS
     Route: 041
     Dates: start: 20160606, end: 20160801
  2. CALCIUM LEVOFOLINATE [Concomitant]
     Active Substance: LEVOLEUCOVORIN CALCIUM
     Dosage: 317 MILLIGRAM, Q2WK
     Route: 041
     Dates: start: 20160606, end: 20160801
  3. TRAMAL [Concomitant]
     Active Substance: TRAMADOL
     Indication: PAIN MANAGEMENT
     Dosage: 25 MILLIGRAM
     Route: 048
     Dates: start: 20160128
  4. PARIET [Concomitant]
     Active Substance: RABEPRAZOLE SODIUM
     Dosage: 10 MILLIGRAM, QD
     Route: 048
     Dates: start: 20161108
  5. MIYA-BM [Concomitant]
     Active Substance: CLOSTRIDIUM BUTYRICUM SPORES STRAIN M-55
     Indication: GASTROINTESTINAL DISORDER
     Dosage: 3 DOSAGE FORM
     Route: 048
     Dates: start: 20160215
  6. PANITUMUMAB [Suspect]
     Active Substance: PANITUMUMAB
     Dosage: 360 MILLIGRAM, Q2WK
     Route: 041
     Dates: start: 20160606, end: 20160921
  7. OXALIPLATIN. [Suspect]
     Active Substance: OXALIPLATIN
     Dosage: 42.5 MILLIGRAM/SQ. METER, Q2WEEKS
     Route: 041
     Dates: start: 20160822, end: 20160905
  8. 5-FU [FLUOROURACIL] [Suspect]
     Active Substance: FLUOROURACIL
     Dosage: 3804 MILLIGRAM, Q2WK
     Route: 041
     Dates: start: 20160606, end: 20160921
  9. LENDORMIN [Concomitant]
     Active Substance: BROTIZOLAM
     Dosage: 0.25 MILLIGRAM, QD
     Route: 048
     Dates: start: 20161110
  10. 5-FU [FLUOROURACIL] [Suspect]
     Active Substance: FLUOROURACIL
     Dosage: 634 MILLIGRAM, Q2WK
     Route: 040
     Dates: start: 20160606, end: 20160921
  11. SPIRONOLACTONE. [Concomitant]
     Active Substance: SPIRONOLACTONE
     Indication: PROPHYLAXIS
     Dosage: 50 MILLIGRAM
     Route: 048
     Dates: start: 20160215
  12. SPIRONOLACTONE. [Concomitant]
     Active Substance: SPIRONOLACTONE
     Dosage: 50 MILLIGRAM, QD
     Route: 048
     Dates: start: 20161219
  13. PANITUMUMAB [Suspect]
     Active Substance: PANITUMUMAB
     Indication: COLON CANCER
     Dosage: 360 MILLIGRAM, Q2WK
     Route: 041
     Dates: start: 20160215, end: 20160509
  14. FUROSEMIDE. [Concomitant]
     Active Substance: FUROSEMIDE
     Indication: PROPHYLAXIS
     Dosage: 40 MILLIGRAM
     Route: 048
     Dates: start: 20160215
  15. FUROSEMIDE. [Concomitant]
     Active Substance: FUROSEMIDE
     Dosage: 40 MILLIGRAM, QD
     Route: 048
     Dates: start: 20161219
  16. GOREISAN [ALISMA PLANTAGO-AQUATICA VAR. ORIENTALE TUBER;ATRACTYLODES L [Concomitant]
     Indication: PROPHYLAXIS OF NAUSEA AND VOMITING
     Dosage: 7.5 MILLIGRAM
     Route: 048
     Dates: start: 20160215
  17. OXALIPLATIN. [Suspect]
     Active Substance: OXALIPLATIN
     Indication: COLON CANCER
     Dosage: 135 MILLIGRAM, Q2WEEKS
     Route: 041
     Dates: start: 20160215, end: 20160509
  18. 5-FU [FLUOROURACIL] [Suspect]
     Active Substance: FLUOROURACIL
     Dosage: UNK
     Route: 041
     Dates: start: 20170615
  19. 5-FU [FLUOROURACIL] [Suspect]
     Active Substance: FLUOROURACIL
     Dosage: UNK
     Route: 040
     Dates: start: 20170615
  20. CALCIUM LEVOFOLINATE [Concomitant]
     Active Substance: LEVOLEUCOVORIN CALCIUM
     Indication: COLON CANCER
     Dosage: 317 MILLIGRAM, Q2WK
     Route: 041
     Dates: start: 20160215, end: 20160509
  21. CALCIUM LEVOFOLINATE [Concomitant]
     Active Substance: LEVOLEUCOVORIN CALCIUM
     Dosage: UNK, Q2WK
     Route: 041
     Dates: start: 20160822, end: 20160921
  22. SULPIRIDE [Concomitant]
     Active Substance: SULPIRIDE
     Indication: DECREASED APPETITE
     Dosage: 150 MILLIGRAM
     Route: 048
     Dates: start: 20160215
  23. 5-FU [FLUOROURACIL] [Suspect]
     Active Substance: FLUOROURACIL
     Indication: COLON CANCER
     Dosage: 634 MILLIGRAM, Q2WK
     Route: 040
     Dates: start: 20160215, end: 20160509
  24. 5-FU [FLUOROURACIL] [Suspect]
     Active Substance: FLUOROURACIL
     Dosage: 3804 MILLIGRAM, Q2WK
     Route: 041
     Dates: start: 20160215, end: 20160509
  25. REBAMIPIDE [Concomitant]
     Active Substance: REBAMIPIDE
     Indication: PROPHYLAXIS
     Dosage: 300 MILLIGRAM
     Route: 048
     Dates: start: 20160728
  26. LENDORMIN [Concomitant]
     Active Substance: BROTIZOLAM
     Indication: INSOMNIA
     Dosage: 0.125 MILLIGRAM
     Route: 048
     Dates: start: 20160215
  27. PARIET [Concomitant]
     Active Substance: RABEPRAZOLE SODIUM
     Indication: PROPHYLAXIS
     Dosage: 10 MILLIGRAM
     Route: 048
     Dates: start: 20160215

REACTIONS (21)
  - Inflammation [Recovered/Resolved]
  - Paronychia [Recovered/Resolved]
  - Interstitial lung disease [Recovering/Resolving]
  - Diarrhoea [Recovered/Resolved]
  - Epistaxis [Recovered/Resolved]
  - Dizziness [Recovered/Resolved]
  - Decreased appetite [Recovered/Resolved]
  - Dehydration [Recovered/Resolved]
  - Neutrophil count decreased [Recovered/Resolved]
  - Blood lactate dehydrogenase increased [Not Recovered/Not Resolved]
  - Blood alkaline phosphatase increased [Recovered/Resolved]
  - Peripheral sensory neuropathy [Recovered/Resolved]
  - C-reactive protein increased [Recovered/Resolved]
  - Palpitations [Recovered/Resolved]
  - Dermatitis acneiform [Recovered/Resolved]
  - Hypomagnesaemia [Not Recovered/Not Resolved]
  - Hypoalbuminaemia [Recovered/Resolved]
  - Oedema peripheral [Not Recovered/Not Resolved]
  - Rash [Recovered/Resolved]
  - Dehydration [Recovered/Resolved]
  - Alopecia [Not Recovered/Not Resolved]

NARRATIVE: CASE EVENT DATE: 20161007
